FAERS Safety Report 19490537 (Version 1)
Quarter: 2021Q3

REPORT INFORMATION
  Report Type: Spontaneous
  Country: CN (occurrence: CN)
  Receive Date: 20210705
  Receipt Date: 20210705
  Transmission Date: 20211014
  Serious: Yes (Other)
  Sender: FDA-Public Use
  Company Number: CN-JIANGSU HENGRUI MEDICINE CO., LTD.-2113461

PATIENT
  Age: 58 Year
  Sex: Female
  Weight: 49.5 kg

DRUGS (1)
  1. LETROZOLE TABLETS USP, 2.5?MG [Suspect]
     Active Substance: LETROZOLE
     Indication: BREAST CANCER
     Route: 048
     Dates: start: 20210407, end: 20210610

REACTIONS (2)
  - Hypokalaemia [Recovering/Resolving]
  - Decreased appetite [Recovering/Resolving]
